FAERS Safety Report 4606378-8 (Version None)
Quarter: 2005Q2

REPORT INFORMATION
  Report Type: 
  Country: None (occurrence: None)
  Receive Date: 20050223
  Receipt Date: 20041103
  Transmission Date: 20051028
  Serious: Yes (Disabling)
  Sender: FDA-Public Use
  Company Number: WAES0411USA00643

PATIENT
  Age: 76 Year
  Sex: Female

DRUGS (1)
  1. ZOCOR [Suspect]
     Dosage: 10 MG/DAILY/PO
     Route: 048
     Dates: start: 20030501, end: 20040101

REACTIONS (1)
  - MUSCULAR WEAKNESS [None]
